FAERS Safety Report 8736518 (Version 2)
Quarter: 2012Q4

REPORT INFORMATION
  Report Type: 
  Country: US (occurrence: US)
  Receive Date: 20120822
  Receipt Date: 20120919
  Transmission Date: 20130627
  Serious: Yes (Other)
  Sender: FDA-Public Use
  Company Number: US-PFIZER INC-2010156732

PATIENT
  Age: 79 Year
  Sex: Female

DRUGS (56)
  1. ZOLOFT [Suspect]
     Dosage: UNK
  2. NORVASC [Suspect]
     Dosage: UNK
  3. CELEBREX [Suspect]
     Dosage: UNK
  4. CARDURA [Suspect]
     Dosage: UNK
  5. MIRTAZAPINE [Suspect]
     Dosage: UNK
  6. WELLBUTRIN XL [Suspect]
     Dosage: UNK
  7. CIPRO [Suspect]
     Dosage: UNK
  8. VASOTEC [Suspect]
     Dosage: UNK
  9. FENTANYL [Suspect]
     Dosage: UNK
  10. TIAZAC [Suspect]
     Dosage: UNK
  11. DILTIAZEM [Suspect]
     Dosage: UNK
  12. CARTIA XT [Suspect]
     Dosage: UNK
  13. LEVAQUIN [Suspect]
  14. MACROBID [Suspect]
     Dosage: UNK
  15. TEKTURNA [Suspect]
     Dosage: UNK
  16. TOPROL XL [Suspect]
     Dosage: UNK
  17. MICARDIS [Suspect]
     Dosage: UNK
  18. PROZAC [Suspect]
     Dosage: UNK
  19. PAXIL [Suspect]
     Dosage: UNK
  20. CYMBALTA [Suspect]
     Dosage: UNK
  21. DIOVAN [Suspect]
     Dosage: UNK
  22. NAPROXEN SODIUM [Suspect]
     Dosage: UNK
  23. CLONIDINE HYDROCHLORIDE [Suspect]
     Indication: HYPERTENSION
     Dosage: 0.1 mg, as needed
     Route: 048
  24. NIFEDIPINE [Concomitant]
     Dosage: 60 mg, 1x/day
  25. TRICOR [Concomitant]
     Dosage: 145 mg 1/2 tablet daily in the evening
  26. COREG [Concomitant]
     Dosage: 25 mg, 2x/day
     Route: 048
  27. ASPIRIN [Concomitant]
     Indication: PROPHYLAXIS
     Dosage: 81 mg, 1x/day
     Route: 048
  28. HYDROCODONE W/ACETAMINOPHEN [Concomitant]
     Dosage: 10/325 as needed up to 4 times a day
  29. LIPITOR [Concomitant]
     Dosage: 20 mg, 1x/day
     Route: 048
  30. LEXAPRO [Concomitant]
     Dosage: 20 mg, 1x/day
     Route: 048
  31. EFFEXOR-XR [Concomitant]
     Indication: DEPRESSION
     Dosage: 75 mg, 1x/day
     Route: 048
  32. LOTENSIN [Concomitant]
     Dosage: 40 mg, 1x/day
  33. PROTONIX [Concomitant]
     Dosage: 40 mg, 1x/day
  34. REQUIP [Concomitant]
     Indication: RESTLESS LEGS SYNDROME
     Dosage: 0.5 mg, 2x/day, as needed
     Route: 048
  35. BETHANECHOL CHLORIDE [Concomitant]
     Dosage: 75 mg, 2x/day
     Route: 048
  36. OXYCODONE HYDROCHLORIDE [Concomitant]
     Indication: PAIN
     Dosage: 10 mg, 4x/day
     Route: 048
  37. LYRICA [Concomitant]
     Dosage: 50 mg, 1x/day
  38. ALPRAZOLAM [Concomitant]
     Dosage: 0.5 mg, 4x/day, every 6 hours as needed
     Route: 048
  39. ATIVAN [Concomitant]
     Indication: ANXIETY
     Dosage: 1 mg, as needed
  40. BELLADONNA AND PHENOBARBITONE [Concomitant]
     Dosage: UNK
  41. LONOX [Concomitant]
     Dosage: UNK
  42. LOMOTIL [Concomitant]
     Indication: DIARRHOEA
     Dosage: 2.5mg/0.025mg, as needed for diarrhea not to exceed 5 tabs per day
     Route: 048
  43. PROMETHAZINE HYDROCHLORIDE [Concomitant]
     Indication: NAUSEA
     Dosage: 25 mg, 4x/day, every 6 hours as needed for nausea
  44. HYDROXYZINE HYDROCHLORIDE [Concomitant]
     Indication: PRURITUS
     Dosage: 25 mg, 2x/day
     Route: 048
  45. AMBIEN [Concomitant]
     Indication: INSOMNIA
     Dosage: 10 mg, 1x/day, at bedtime as needed
  46. CLONAZEPAM [Concomitant]
     Indication: PAIN
     Dosage: 1 mg, as needed
  47. CLONAZEPAM [Concomitant]
     Indication: MUSCLE SPASMS
  48. OSCAL D [Concomitant]
     Dosage: 500mg/200mg, 1x/day
     Route: 048
  49. MOMETASONE FUROATE [Concomitant]
     Dosage: 0.1 %, 1x/day, as needed
  50. ESTRACE [Concomitant]
     Dosage: 0.1 mg/ml, as needed, MWF
     Route: 067
  51. LACLOTION [Concomitant]
     Indication: HYPERKERATOSIS
     Dosage: 12 %, up to 4x/day
     Route: 058
  52. PLAVIX [Concomitant]
  53. DARVOCET [Concomitant]
  54. HYDROCHLOROTHIAZIDE [Concomitant]
  55. KLOR-CON [Concomitant]
  56. CATAPRES-TTS [Concomitant]

REACTIONS (23)
  - Orthostatic hypotension [Unknown]
  - Hypotension [Unknown]
  - Heart rate decreased [Unknown]
  - Blood creatine increased [Unknown]
  - Restless legs syndrome [Unknown]
  - Pharyngeal oedema [Unknown]
  - Palpitations [Unknown]
  - Blood pressure increased [Unknown]
  - Agitation [Unknown]
  - Disorientation [Unknown]
  - Pruritus [Unknown]
  - Abdominal pain [Unknown]
  - Diarrhoea [Unknown]
  - Nausea [Unknown]
  - Tremor [Unknown]
  - Anxiety [Unknown]
  - Dyspepsia [Unknown]
  - Nightmare [Unknown]
  - Muscle spasms [Unknown]
  - Feeling of body temperature change [Unknown]
  - Arthralgia [Unknown]
  - Fatigue [Unknown]
  - Dry mouth [Unknown]
